FAERS Safety Report 9813352 (Version 1)
Quarter: 2014Q1

REPORT INFORMATION
  Report Type: Spontaneous
  Country: US (occurrence: US)
  Receive Date: 20140113
  Receipt Date: 20140113
  Transmission Date: 20141002
  Serious: No
  Sender: FDA-Public Use
  Company Number: US-009507513-1401USA001624

PATIENT
  Sex: Male

DRUGS (8)
  1. SINEMET [Suspect]
     Indication: PARKINSON^S DISEASE
     Dosage: 2 DF, TID
     Route: 048
     Dates: start: 201101
  2. TOPIRAMATE [Suspect]
     Indication: PARKINSON^S DISEASE
  3. SELEGILINE [Suspect]
     Indication: PARKINSON^S DISEASE
  4. MIRAPEX [Suspect]
  5. BENADRYL [Suspect]
     Indication: PARKINSON^S DISEASE
  6. CYMBALTA [Suspect]
     Indication: PARKINSON^S DISEASE
  7. AZILECT [Concomitant]
  8. NEUPRO [Concomitant]
     Dosage: UNK
     Dates: start: 201311

REACTIONS (9)
  - Asthma [Not Recovered/Not Resolved]
  - Overdose [Unknown]
  - Impaired gastric emptying [Not Recovered/Not Resolved]
  - Dyspnoea [Not Recovered/Not Resolved]
  - Dyspnoea [Not Recovered/Not Resolved]
  - Tremor [Not Recovered/Not Resolved]
  - Therapeutic response decreased [Not Recovered/Not Resolved]
  - Dysphagia [Not Recovered/Not Resolved]
  - Fatigue [Not Recovered/Not Resolved]
